FAERS Safety Report 10096960 (Version 3)
Quarter: 2015Q3

REPORT INFORMATION
  Report Type: Spontaneous
  Country: US (occurrence: US)
  Receive Date: 20140422
  Receipt Date: 20150812
  Transmission Date: 20151125
  Serious: No
  Sender: FDA-Public Use
  Company Number: US-GILEAD-2012-0063224

PATIENT
  Age: 87 Year
  Sex: Female
  Weight: 57.14 kg

DRUGS (1)
  1. LETAIRIS [Suspect]
     Active Substance: AMBRISENTAN
     Indication: PULMONARY HYPERTENSION
     Dosage: 5 MG, UNK
     Route: 048
     Dates: start: 20120927

REACTIONS (10)
  - Chest discomfort [Unknown]
  - Chest pain [Unknown]
  - Palpitations [Unknown]
  - Heart rate irregular [Unknown]
  - Sinus congestion [Unknown]
  - Jaundice [Unknown]
  - Hypotension [Unknown]
  - Dyspnoea [Unknown]
  - Malaise [Unknown]
  - Fluid retention [Unknown]
